FAERS Safety Report 10329853 (Version 1)
Quarter: 2014Q3

REPORT INFORMATION
  Report Type: Spontaneous
  Country: US (occurrence: US)
  Receive Date: 20140721
  Receipt Date: 20140721
  Transmission Date: 20150326
  Serious: No
  Sender: FDA-Public Use
  Company Number: US-009507513-1406USA002951

PATIENT
  Sex: Male

DRUGS (3)
  1. CLARITIN [Suspect]
     Active Substance: LORATADINE
     Indication: HYPERSENSITIVITY
     Dosage: UNK, UNKNOWN
     Route: 048
  2. CLARITIN [Suspect]
     Active Substance: LORATADINE
     Indication: SINUS CONGESTION
  3. CLARITIN [Suspect]
     Active Substance: LORATADINE
     Indication: EYE PRURITUS

REACTIONS (1)
  - Drug effect decreased [Unknown]
